FAERS Safety Report 23755434 (Version 1)
Quarter: 2024Q2

REPORT INFORMATION
  Report Type: Spontaneous
  Country: ZA (occurrence: None)
  Receive Date: 20240418
  Receipt Date: 20240418
  Transmission Date: 20240716
  Serious: Yes (Hospitalization, Other)
  Sender: FDA-Public Use
  Company Number: 2024A090116

PATIENT
  Age: 22645 Day
  Sex: Female

DRUGS (6)
  1. DAPAGLIFLOZIN PROPANEDIOL [Suspect]
     Active Substance: DAPAGLIFLOZIN PROPANEDIOL
     Route: 048
  2. GLICLAZIDE [Concomitant]
     Active Substance: GLICLAZIDE
  3. PREMARIN [Concomitant]
     Active Substance: ESTROGENS, CONJUGATED
  4. CARBUCE XR [Concomitant]
  5. ECOTRIN [Concomitant]
     Active Substance: ASPIRIN
  6. ZERPAS [Concomitant]

REACTIONS (1)
  - Cerebrovascular accident [Unknown]
